FAERS Safety Report 18513583 (Version 1)
Quarter: 2020Q4

REPORT INFORMATION
  Report Type: Spontaneous
  Country: BE (occurrence: BE)
  Receive Date: 20201117
  Receipt Date: 20201117
  Transmission Date: 20210114
  Serious: Yes (Hospitalization, Other)
  Sender: FDA-Public Use
  Company Number: BE-TAKEDA-2020TUS048054

PATIENT
  Age: 23 Year
  Sex: Male
  Weight: 61.5 kg

DRUGS (8)
  1. TIBERAL [Concomitant]
     Active Substance: ORNIDAZOLE
     Dosage: 500 MILLIGRAM
  2. ENTYVIO [Suspect]
     Active Substance: VEDOLIZUMAB
     Indication: COLITIS ULCERATIVE
     Dosage: UNK
     Route: 065
  3. CLIPPER [Concomitant]
     Active Substance: BECLOMETHASONE DIPROPIONATE
     Dosage: UNK
  4. MEDROL [METHYLPREDNISOLONE ACETATE] [Concomitant]
     Active Substance: METHYLPREDNISOLONE ACETATE
     Dosage: 32 MILLIGRAM
  5. SOLU-MEDROL [Concomitant]
     Active Substance: METHYLPREDNISOLONE SODIUM SUCCINATE
     Dosage: 40 MILLIGRAM
     Route: 042
  6. COLITOFALK [Concomitant]
     Active Substance: MESALAMINE
     Dosage: 3 GRAM
  7. URSOFALK [Concomitant]
     Active Substance: URSODIOL
     Dosage: 250 MILLIGRAM
  8. TAVANIC [Concomitant]
     Active Substance: LEVOFLOXACIN
     Dosage: 500 MILLIGRAM

REACTIONS (1)
  - Colitis ulcerative [Unknown]
